FAERS Safety Report 13754856 (Version 1)
Quarter: 2017Q3

REPORT INFORMATION
  Report Type: Spontaneous
  Country: BY (occurrence: BY)
  Receive Date: 20170714
  Receipt Date: 20170714
  Transmission Date: 20171127
  Serious: Yes (Other)
  Sender: FDA-Public Use
  Company Number: BY-ASTELLAS-2017US027043

PATIENT
  Sex: Female

DRUGS (6)
  1. PAPAVERINE [Concomitant]
     Active Substance: PAPAVERINE
     Indication: DRUG THERAPY
     Dosage: UNK UNK, UNKNOWN FREQ.
     Route: 054
  2. TACROLIMUS. [Suspect]
     Active Substance: TACROLIMUS
     Route: 065
  3. METHYLPREDNISOLONE. [Suspect]
     Active Substance: METHYLPREDNISOLONE
     Indication: RENAL AND LIVER TRANSPLANT
     Route: 065
  4. TACROLIMUS. [Suspect]
     Active Substance: TACROLIMUS
     Route: 065
  5. DROTAVERINE [Concomitant]
     Active Substance: DROTAVERINE
     Indication: DRUG THERAPY
     Dosage: UNK, UNKNOWN FREQ.
     Route: 041
  6. TACROLIMUS. [Suspect]
     Active Substance: TACROLIMUS
     Indication: RENAL AND LIVER TRANSPLANT
     Route: 065

REACTIONS (4)
  - Vaginal infection [Recovered/Resolved]
  - Anaemia [Recovered/Resolved]
  - Exposure during pregnancy [Unknown]
  - Abortion threatened [Recovered/Resolved]
